FAERS Safety Report 13600314 (Version 1)
Quarter: 2017Q2

REPORT INFORMATION
  Report Type: Spontaneous
  Country: US (occurrence: US)
  Receive Date: 20170531
  Receipt Date: 20170531
  Transmission Date: 20170830
  Serious: Yes (Other)
  Sender: FDA-Public Use
  Company Number: None

PATIENT
  Age: 51 Year
  Sex: Female

DRUGS (1)
  1. BASAGLAR [Suspect]
     Active Substance: INSULIN GLARGINE
     Indication: TYPE 2 DIABETES MELLITUS
     Route: 058
     Dates: start: 20170508, end: 20170531

REACTIONS (8)
  - Hyperglycaemia [None]
  - Drug ineffective [None]
  - Headache [None]
  - Incorrect dose administered [None]
  - Nausea [None]
  - Abdominal distension [None]
  - Urine odour abnormal [None]
  - Urine ketone body present [None]

NARRATIVE: CASE EVENT DATE: 20170531
